FAERS Safety Report 4350231-4 (Version None)
Quarter: 2004Q1

REPORT INFORMATION
  Report Type: 
  Country: None (occurrence: None)
  Receive Date: 20040329
  Receipt Date: 20040121
  Transmission Date: 20041129
  Serious: No
  Sender: FDA-Public Use
  Company Number: USA040157109

PATIENT
  Age: 11 Year
  Sex: Female
  Weight: 48 kg

DRUGS (1)
  1. STRATTERA [Suspect]
     Indication: ATTENTION DEFICIT/HYPERACTIVITY DISORDER
     Dosage: 70 MG/DAY
     Dates: start: 20030101

REACTIONS (2)
  - DYSGEUSIA [None]
  - INSOMNIA [None]
